FAERS Safety Report 8096729-7 (Version None)
Quarter: 2012Q1

REPORT INFORMATION
  Report Type: 
  Country: None (occurrence: None)
  Receive Date: 20120129
  Receipt Date: 20111116
  Transmission Date: 20120608
  Serious: No
  Sender: FDA-Public Use
  Company Number: US-ABBOTT-11P-163-0874752-00

PATIENT
  Age: 54 Year
  Sex: Male

DRUGS (4)
  1. HUMIRA [Suspect]
     Indication: RETINAL VASCULITIS
     Dates: start: 20110909
  2. UNKNOWN EYE DROPS [Concomitant]
     Indication: ABNORMAL SENSATION IN EYE
     Dosage: DAILY
     Route: 047
  3. FOLIC ACID [Concomitant]
     Indication: PRODUCT USED FOR UNKNOWN INDICATION
     Dosage: DAILY
  4. METHOTREXATE [Concomitant]
     Indication: PRODUCT USED FOR UNKNOWN INDICATION
     Dosage: 15 MG ONCE A WEEK

REACTIONS (2)
  - TOOTHACHE [None]
  - PAIN [None]
